FAERS Safety Report 11663431 (Version 3)
Quarter: 2015Q4

REPORT INFORMATION
  Report Type: Spontaneous
  Country: US (occurrence: US)
  Receive Date: 20151027
  Receipt Date: 20151105
  Transmission Date: 20160304
  Serious: No
  Sender: FDA-Public Use
  Company Number: US-PFIZER INC-2015328406

PATIENT
  Age: 56 Year
  Sex: Male
  Weight: 86.2 kg

DRUGS (16)
  1. CITALOPRAM [Concomitant]
     Active Substance: CITALOPRAM HYDROBROMIDE
     Dosage: 20 MG, 2X/DAY
  2. OXYCODONE [Concomitant]
     Active Substance: OXYCODONE
     Indication: LIMB DISCOMFORT
  3. LOSARTAN. [Concomitant]
     Active Substance: LOSARTAN
     Indication: BLOOD PRESSURE MEASUREMENT
     Dosage: 50 MG, 2X/DAY (ONCE IN MORNING AND ONCE AT NIGHT)
  4. RAPAMUNE [Suspect]
     Active Substance: SIROLIMUS
     Dosage: 3 MG, UNK
  5. ONDANSETRON [Concomitant]
     Active Substance: ONDANSETRON
     Dosage: 4 MG, AS NEEDED
  6. BUPROPION. [Concomitant]
     Active Substance: BUPROPION
     Dosage: 150 MG, DAILY
  7. LYRICA [Concomitant]
     Active Substance: PREGABALIN
     Indication: LIMB DISCOMFORT
     Dosage: 75 MG, 2X/DAY
  8. CORTIZONE 10 [Concomitant]
     Active Substance: HYDROCORTISONE
     Dosage: 30 MG, DAILY
  9. RAPAMUNE [Suspect]
     Active Substance: SIROLIMUS
     Indication: PROPHYLAXIS AGAINST TRANSPLANT REJECTION
     Dosage: 1 MG, UNK
  10. RAPAMUNE [Suspect]
     Active Substance: SIROLIMUS
     Dosage: 2 MG, 3X/DAY
     Dates: start: 20150806
  11. ASPRIN [Concomitant]
     Active Substance: ASPIRIN
     Dosage: UNK, DAILY (ONCE TABLET DAILY)
  12. PROTONIX [Concomitant]
     Active Substance: PANTOPRAZOLE SODIUM
     Indication: DYSPEPSIA
     Dosage: 140 MG, 1X/DAY
  13. OXYCODONE [Concomitant]
     Active Substance: OXYCODONE
     Indication: MUSCULOSKELETAL DISCOMFORT
     Dosage: 5 MG, AS NEEDED (2-3 TABLETS DAILY, TAKEN AS NEEDED)
  14. ASPRIN [Concomitant]
     Active Substance: ASPIRIN
     Dosage: 2 DF, UNK (2/TWICE)
  15. TACROLIMUS. [Concomitant]
     Active Substance: TACROLIMUS
     Dosage: UNK
  16. PANTOPRAZOLE [Concomitant]
     Active Substance: PANTOPRAZOLE SODIUM
     Dosage: 40 MG, 2X/DAY

REACTIONS (4)
  - Skin exfoliation [Unknown]
  - Product use issue [Unknown]
  - Dry mouth [Unknown]
  - Oral mucosal blistering [Unknown]
